FAERS Safety Report 18311744 (Version 1)
Quarter: 2020Q3

REPORT INFORMATION
  Report Type: Spontaneous
  Country: US (occurrence: US)
  Receive Date: 20200925
  Receipt Date: 20200925
  Transmission Date: 20201103
  Serious: Yes (Other)
  Sender: FDA-Public Use
  Company Number: US-BRISTOL-MYERS SQUIBB COMPANY-BMS-2020-076627

PATIENT
  Sex: Male

DRUGS (2)
  1. YERVOY [Suspect]
     Active Substance: IPILIMUMAB
     Indication: PROSTATE CANCER
     Dosage: 85 MILLIGRAM, Q3WK
     Route: 065
     Dates: start: 20200717
  2. OPDIVO [Suspect]
     Active Substance: NIVOLUMAB
     Indication: PROSTATE CANCER
     Dosage: 255 MILLIGRAM, Q3WK
     Route: 065
     Dates: start: 20200717

REACTIONS (2)
  - Intentional product use issue [Unknown]
  - Malignant neoplasm progression [Unknown]
